FAERS Safety Report 4674967-0 (Version None)
Quarter: 2005Q2

REPORT INFORMATION
  Report Type: 
  Country: None (occurrence: None)
  Receive Date: 20050525
  Receipt Date: 20050512
  Transmission Date: 20051028
  Serious: Yes (Hospitalization)
  Sender: FDA-Public Use
  Company Number: 213374

PATIENT
  Age: 57 Year
  Sex: Male
  Weight: 52.6 kg

DRUGS (12)
  1. AVASTIN [Suspect]
     Indication: HEPATIC NEOPLASM MALIGNANT
     Dosage: 10 MG, Q2W, INTRAVENOUS
     Route: 042
     Dates: start: 20050209, end: 20050316
  2. GEMCITABINE (GEMCITABINE HYDROCHLORIDE) [Suspect]
     Indication: HEPATIC NEOPLASM MALIGNANT
     Dosage: 1000 MG, Q2W, INTRAVENOUS
     Route: 042
     Dates: start: 20050224, end: 20050317
  3. OXALIPLATIN (OXALIPLATIN) [Suspect]
     Indication: HEPATIC NEOPLASM MALIGNANT
     Dosage: 85 MG/M2, Q2W, INTRAVENOUS
     Route: 042
     Dates: start: 20050224, end: 20050317
  4. TYLENOL [Concomitant]
  5. NADOLOL [Concomitant]
  6. PROTONIX (PROTONIX) [Concomitant]
  7. ZOFRAN [Concomitant]
  8. COMPAZINE [Concomitant]
  9. KCL (POTASSIUM CHLORIDE) [Concomitant]
  10. LACTULOSE [Concomitant]
  11. VANCOMYCIN HYDROCHLORIDE [Concomitant]
  12. BACLOFEN [Concomitant]

REACTIONS (7)
  - BACTERAEMIA [None]
  - CATHETER RELATED INFECTION [None]
  - DEHYDRATION [None]
  - HYPOTENSION [None]
  - INAPPROPRIATE ANTIDIURETIC HORMONE SECRETION [None]
  - KLEBSIELLA INFECTION [None]
  - PLATELET COUNT DECREASED [None]
